FAERS Safety Report 4709618-X (Version None)
Quarter: 2005Q3

REPORT INFORMATION
  Report Type: 
  Country: None (occurrence: None)
  Receive Date: 20050707
  Receipt Date: 20041102
  Transmission Date: 20060218
  Serious: Yes (Death, Hospitalization)
  Sender: FDA-Public Use
  Company Number: A03200403677

PATIENT
  Age: 78 Year
  Sex: Female

DRUGS (10)
  1. PLAVIX [Suspect]
     Indication: ANGIOPLASTY
     Dosage: 75 MG QD ORAL
     Route: 048
     Dates: start: 20030410
  2. PLAVIX [Suspect]
     Indication: STENT PLACEMENT
     Dosage: 75 MG QD ORAL
     Route: 048
     Dates: start: 20030410
  3. ASPIRIN [Concomitant]
  4. RAMIPRIL [Concomitant]
  5. METOPROLOL SUCCINATE [Concomitant]
  6. SIMVASTATIN [Concomitant]
  7. GLYCERYL TRINITRATE [Concomitant]
  8. CALCIUM GLUCONATE [Concomitant]
  9. FOLIC ACID [Concomitant]
  10. VITAMINS [Concomitant]

REACTIONS (13)
  - ANAEMIA HAEMOLYTIC AUTOIMMUNE [None]
  - BLOOD GLUCOSE INCREASED [None]
  - DEPRESSED LEVEL OF CONSCIOUSNESS [None]
  - GENERAL PHYSICAL HEALTH DETERIORATION [None]
  - HAEMOGLOBIN DECREASED [None]
  - HAEMORRHAGE INTRACRANIAL [None]
  - INTERNATIONAL NORMALISED RATIO INCREASED [None]
  - LETHARGY [None]
  - PNEUMONIA [None]
  - RALES [None]
  - RENAL FAILURE [None]
  - THERAPY NON-RESPONDER [None]
  - THROMBOTIC THROMBOCYTOPENIC PURPURA [None]
